FAERS Safety Report 4943860-8 (Version None)
Quarter: 2006Q1

REPORT INFORMATION
  Report Type: 
  Country: None (occurrence: None)
  Receive Date: 20060310
  Receipt Date: 20060222
  Transmission Date: 20060701
  Serious: Yes (Other)
  Sender: FDA-Public Use
  Company Number: CA-2006-004113

PATIENT
  Age: 56 Year
  Sex: Male

DRUGS (2)
  1. BETASERON (INTERFERON BETA - LB ) INJECTION, 250?G [Suspect]
     Indication: PRIMARY PROGRESSIVE MULTIPLE SCLEROSIS
     Dosage: 8 MIU, SUBCUTANEOUS
     Route: 058
     Dates: start: 20060213
  2. TYLENOL W/ CODEINE NO. 3 [Concomitant]

REACTIONS (2)
  - DEMENTIA [None]
  - INFLUENZA LIKE ILLNESS [None]
